FAERS Safety Report 24576632 (Version 1)
Quarter: 2024Q4

REPORT INFORMATION
  Report Type: Spontaneous
  Country: US (occurrence: None)
  Receive Date: 20241103
  Receipt Date: 20241103
  Transmission Date: 20250114
  Serious: Yes (Life-Threatening, Disabling, Other)
  Sender: Public
  Company Number: None

PATIENT
  Age: 55 Year
  Sex: Female
  Weight: 103.5 kg

DRUGS (21)
  1. RITUXAN [Suspect]
     Active Substance: RITUXIMAB
     Indication: Rheumatoid arthritis
     Dates: start: 20241017, end: 20241017
  2. Memanatine [Concomitant]
  3. KLONOPIN [Concomitant]
     Active Substance: CLONAZEPAM
  4. ROBAXIN [Concomitant]
     Active Substance: METHOCARBAMOL
  5. PREDNISONE [Concomitant]
     Active Substance: PREDNISONE
  6. METHOTREXATE [Concomitant]
     Active Substance: METHOTREXATE
  7. LEUCOVORIN [Concomitant]
     Active Substance: LEUCOVORIN\LEUCOVORIN CALCIUM
  8. BUMEX [Concomitant]
     Active Substance: BUMETANIDE
  9. sprironolactone [Concomitant]
  10. POTASSIUM CHLORIDE [Concomitant]
     Active Substance: POTASSIUM CHLORIDE
  11. B12 [Concomitant]
  12. DICLOFENAC [Concomitant]
     Active Substance: DICLOFENAC
  13. SINGULAIR [Concomitant]
     Active Substance: MONTELUKAST SODIUM
  14. XOPENEX [Concomitant]
     Active Substance: LEVALBUTEROL HYDROCHLORIDE
  15. XARELTO [Concomitant]
     Active Substance: RIVAROXABAN
  16. ADVAIR HFA [Concomitant]
     Active Substance: FLUTICASONE PROPIONATE\SALMETEROL XINAFOATE
  17. PATADAY [Concomitant]
     Active Substance: OLOPATADINE HYDROCHLORIDE
  18. CLARITIN [Concomitant]
     Active Substance: LORATADINE
  19. ZYRTEC [Concomitant]
     Active Substance: CETIRIZINE HYDROCHLORIDE
  20. BENADRYL [Concomitant]
     Active Substance: DIPHENHYDRAMINE HYDROCHLORIDE
  21. TYLENOL [Concomitant]
     Active Substance: ACETAMINOPHEN

REACTIONS (24)
  - Wrong technique in product usage process [None]
  - Drug monitoring procedure not performed [None]
  - Infusion related reaction [None]
  - Rhinorrhoea [None]
  - Back pain [None]
  - Diarrhoea [None]
  - Swelling face [None]
  - Vision blurred [None]
  - Headache [None]
  - Chest pain [None]
  - Blood pressure decreased [None]
  - Dizziness [None]
  - Fatigue [None]
  - Infection [None]
  - Renal disorder [None]
  - Bladder spasm [None]
  - Palpitations [None]
  - Increased tendency to bruise [None]
  - Nasal congestion [None]
  - Cough [None]
  - Decreased appetite [None]
  - Drug ineffective [None]
  - Victim of abuse [None]
  - Product use issue [None]

NARRATIVE: CASE EVENT DATE: 20241017
